FAERS Safety Report 19784112 (Version 2)
Quarter: 2022Q1

REPORT INFORMATION
  Report Type: Report from Study
  Country: US (occurrence: US)
  Receive Date: 20210903
  Receipt Date: 20220103
  Transmission Date: 20220423
  Serious: No
  Sender: FDA-Public Use
  Company Number: US-AMGEN-USASP2021133083

PATIENT
  Age: 63 Year
  Sex: Male

DRUGS (1)
  1. REPATHA [Suspect]
     Active Substance: EVOLOCUMAB
     Indication: Blood cholesterol increased
     Dosage: 140 MILLIGRAM PER MILLIGRAM, Q2WK
     Route: 065
     Dates: start: 2021

REACTIONS (4)
  - Injury associated with device [Unknown]
  - Glucose tolerance impaired [Unknown]
  - Myalgia [Unknown]
  - Nausea [Unknown]

NARRATIVE: CASE EVENT DATE: 20210101
